FAERS Safety Report 9849145 (Version 1)
Quarter: 2013Q4

REPORT INFORMATION
  Report Type: Spontaneous
  Country: US (occurrence: None)
  Receive Date: 20131223
  Receipt Date: 20131223
  Transmission Date: 20140711
  Serious: Yes (Other)
  Sender: FDA-Public Use
  Company Number: CABO-13003666

PATIENT
  Age: 67 Year
  Sex: Female
  Weight: 48.2 kg

DRUGS (12)
  1. COMETRIQ [Suspect]
     Indication: THYROID CANCER
     Route: 048
     Dates: start: 20130613, end: 20131023
  2. SYNTHROID (LEVOTHYROXINE SODIUM) [Concomitant]
  3. AMBIEN (ZOLPIDEM TARTRATE) [Concomitant]
  4. IBUPROFEN (IBUPROFEN SODIUM) [Concomitant]
  5. LOMUSTINE (LOMUSTINE) [Concomitant]
  6. AMOXICILLIN (AMOXCILLIN SODIUM) [Concomitant]
  7. AUGMENTIN (AMOXICILLIN TRIHYDRATE, CLAVULANATE POTASSIUM)? [Concomitant]
  8. CALCIUM (CALCIUM) [Concomitant]
  9. HYDROCODONE (HYDROCODONE BITARTRATE) [Concomitant]
  10. CEFUROXIME (CEFUROXIME AXETIL) [Concomitant]
  11. POTASSIUM (POTASSIUM) [Concomitant]
  12. IRON (IRON) [Concomitant]

REACTIONS (4)
  - Oral infection [None]
  - Pain in jaw [None]
  - Diarrhoea [None]
  - Pain in extremity [None]
